FAERS Safety Report 17518864 (Version 2)
Quarter: 2020Q2

REPORT INFORMATION
  Report Type: Spontaneous
  Country: US (occurrence: US)
  Receive Date: 20200310
  Receipt Date: 20200402
  Transmission Date: 20200713
  Serious: No
  Sender: FDA-Public Use
  Company Number: US-ASTRAZENECA-2020SE30492

PATIENT
  Age: 29925 Day
  Sex: Male
  Weight: 81.6 kg

DRUGS (1)
  1. BYDUREON BCISE [Suspect]
     Active Substance: EXENATIDE
     Indication: TYPE 2 DIABETES MELLITUS
     Route: 058

REACTIONS (8)
  - Injection site haemorrhage [Unknown]
  - Intentional device misuse [Unknown]
  - Intentional product misuse [Unknown]
  - Injection site pain [Not Recovered/Not Resolved]
  - Drug delivery system issue [Unknown]
  - Device leakage [Unknown]
  - Injection site nodule [Unknown]
  - Drug dose omission by device [Unknown]

NARRATIVE: CASE EVENT DATE: 20200226
